FAERS Safety Report 10285425 (Version 2)
Quarter: 2014Q3

REPORT INFORMATION
  Report Type: Spontaneous
  Country: PL (occurrence: PL)
  Receive Date: 20140708
  Receipt Date: 20140806
  Transmission Date: 20150326
  Serious: Yes (Hospitalization, Other)
  Sender: FDA-Public Use
  Company Number: PHHY2014PL082317

PATIENT
  Age: 74 Year
  Sex: Female

DRUGS (9)
  1. ZYRTEC [Concomitant]
     Active Substance: CETIRIZINE HYDROCHLORIDE
     Route: 048
  2. ZOMIREN [Concomitant]
     Dosage: 0.25 MG, UNK
     Route: 048
     Dates: start: 201309, end: 201309
  3. SYMBICORT [Concomitant]
     Active Substance: BUDESONIDE\FORMOTEROL FUMARATE DIHYDRATE
     Indication: GLAUCOMA
     Dates: end: 201309
  4. ZOMIREN [Concomitant]
     Dosage: 0.25 MG, BID, OUT OF THE 30 TABLETS IN THE BOX 11 WERE LEFT
     Route: 048
     Dates: start: 20140123, end: 20140216
  5. VICEBROL [Suspect]
     Active Substance: VINPOCETINE
     Route: 048
     Dates: start: 20140417, end: 20140423
  6. ISOPTIN [Concomitant]
     Active Substance: VERAPAMIL HYDROCHLORIDE
     Dosage: 40 MG, BID
     Route: 048
  7. VITRUM CALCIUM [Concomitant]
  8. MULTIVITAMIN//VITAMINS NOS [Concomitant]
     Active Substance: VITAMINS
     Dates: start: 20140627
  9. TAFEN NASAL [Suspect]
     Active Substance: BUDESONIDE
     Dosage: 1 DF, UNK
     Route: 045
     Dates: start: 201309, end: 201309

REACTIONS (8)
  - Malaise [Unknown]
  - Headache [Unknown]
  - Limb discomfort [Not Recovered/Not Resolved]
  - Angina pectoris [Unknown]
  - Feeling abnormal [Not Recovered/Not Resolved]
  - Vertigo [Not Recovered/Not Resolved]
  - Discomfort [Not Recovered/Not Resolved]
  - Embolism venous [Unknown]

NARRATIVE: CASE EVENT DATE: 201309
